FAERS Safety Report 11088336 (Version 3)
Quarter: 2015Q3

REPORT INFORMATION
  Report Type: Spontaneous
  Country: US (occurrence: US)
  Receive Date: 20150504
  Receipt Date: 20150707
  Transmission Date: 20151125
  Serious: Yes (Hospitalization, Other)
  Sender: FDA-Public Use
  Company Number: US-PFIZER INC-2015144316

PATIENT
  Age: 45 Year
  Sex: Female
  Weight: 90 kg

DRUGS (16)
  1. PLAVIX [Concomitant]
     Active Substance: CLOPIDOGREL BISULFATE
     Dosage: 75 MG, UNK
     Dates: start: 201404
  2. RANEXA [Concomitant]
     Active Substance: RANOLAZINE
     Dosage: 500 MG, UNK
     Dates: start: 201408
  3. LEVOTHYROXIN [Concomitant]
     Active Substance: LEVOTHYROXINE
     Dosage: 150 ?G, UNK
     Dates: start: 200011
  4. OMEPRAZOLE. [Concomitant]
     Active Substance: OMEPRAZOLE
     Dosage: 20.5 MG, UNK
     Dates: start: 200006
  5. NITROSTAT [Concomitant]
     Active Substance: NITROGLYCERIN
     Dosage: 0.4 MG, UNK
     Dates: start: 201406
  6. KEPPRA [Concomitant]
     Active Substance: LEVETIRACETAM
     Dosage: 500 MG, UNK
     Dates: start: 201404
  7. LYRICA [Suspect]
     Active Substance: PREGABALIN
     Indication: DIABETIC NEUROPATHY
     Dosage: 75 MG, 1X/DAY
     Dates: start: 2012, end: 2013
  8. METFORMIN [Concomitant]
     Active Substance: METFORMIN HYDROCHLORIDE
     Dosage: 500 MG, UNK
     Dates: start: 201404
  9. BAYER ASPIRIN [Concomitant]
     Active Substance: ASPIRIN
     Dosage: 81 MG, UNK
     Dates: start: 201406
  10. ISOSORB MONO ER [Concomitant]
     Dosage: 60 MG, UNK
     Dates: start: 201408
  11. AMITRIPTYLIN [Concomitant]
     Active Substance: AMITRIPTYLINE
     Dosage: 25 MG, UNK
     Dates: start: 200011
  12. DILANTIN [Concomitant]
     Active Substance: PHENYTOIN
     Dosage: 100 MG, UNK
     Dates: start: 201304
  13. ATENOLOL. [Concomitant]
     Active Substance: ATENOLOL
     Dosage: 25 MG, UNK
     Dates: start: 201404
  14. CITALOPRAM [Concomitant]
     Active Substance: CITALOPRAM HYDROBROMIDE
     Dosage: 40 MG, UNK
     Dates: start: 201404
  15. LYRICA [Suspect]
     Active Substance: PREGABALIN
     Dosage: 75 MG, 2X/DAY
     Dates: start: 2013
  16. CRESTOR [Concomitant]
     Active Substance: ROSUVASTATIN CALCIUM
     Dosage: 20 MG, UNK
     Dates: start: 200008

REACTIONS (21)
  - Muscular weakness [Unknown]
  - Activities of daily living impaired [Unknown]
  - Walking aid user [Unknown]
  - Cardiac disorder [Not Recovered/Not Resolved]
  - Abdominal pain upper [Unknown]
  - Neck pain [Unknown]
  - Amnesia [Unknown]
  - Pain in extremity [Unknown]
  - Nausea [Unknown]
  - Musculoskeletal pain [Unknown]
  - Chest pain [Unknown]
  - Hypoaesthesia [Unknown]
  - Pain [Unknown]
  - Coronary artery occlusion [Not Recovered/Not Resolved]
  - Dyspnoea [Unknown]
  - Diabetes mellitus [Not Recovered/Not Resolved]
  - Cough [Unknown]
  - Movement disorder [Unknown]
  - Dizziness [Unknown]
  - Feeling abnormal [Unknown]
  - Seizure [Not Recovered/Not Resolved]

NARRATIVE: CASE EVENT DATE: 2014
